FAERS Safety Report 20218828 (Version 1)
Quarter: 2021Q4

REPORT INFORMATION
  Report Type: Spontaneous
  Country: US (occurrence: US)
  Receive Date: 20211222
  Receipt Date: 20211222
  Transmission Date: 20220303
  Serious: No
  Sender: FDA-Public Use
  Company Number: US-BioHaven Pharmaceuticals-2021BHV000783

PATIENT
  Age: 52 Year
  Sex: Female
  Weight: 105.33 kg

DRUGS (1)
  1. NURTEC ODT [Suspect]
     Active Substance: RIMEGEPANT SULFATE
     Indication: Migraine
     Dosage: SUPPOSE TO BE TAKING IT EVERY OTHER DAY BUT COULD NOT TOLERATE IT AND HAS CHANGED TO JUST AS NEEDED
     Route: 048
     Dates: start: 202107

REACTIONS (5)
  - Gastrointestinal disorder [Recovered/Resolved]
  - Drug intolerance [Recovering/Resolving]
  - Diarrhoea [Recovered/Resolved]
  - Drug ineffective [Recovering/Resolving]
  - Nausea [Recovered/Resolved]

NARRATIVE: CASE EVENT DATE: 20210101
